FAERS Safety Report 8266931-X (Version None)
Quarter: 2012Q2

REPORT INFORMATION
  Report Type: 
  Country: None (occurrence: None)
  Receive Date: 20120404
  Receipt Date: 20120404
  Transmission Date: 20120825
  Serious: Yes (Hospitalization)
  Sender: FDA-Public Use
  Company Number: None

PATIENT
  Age: 49 Year
  Sex: Female
  Weight: 100.1 kg

DRUGS (15)
  1. PERCOCET [Concomitant]
  2. ALPRAZOLAM [Concomitant]
  3. ALBUTEROL [Concomitant]
  4. MORPHINE [Suspect]
     Indication: PAIN
     Dosage: 10MG ONCE IV RECENT
     Route: 042
  5. IMITREX [Concomitant]
  6. FLUTICASONE FUROATE [Concomitant]
  7. DILAUDID [Suspect]
     Indication: PAIN
     Dosage: 2MG ONCE IV RECENT
     Route: 042
  8. REGLAN [Suspect]
     Dosage: 10MG IV ONCE RECENT
     Route: 042
  9. CETIRIZINE [Concomitant]
  10. DICLOFENAC SODIUM [Concomitant]
  11. HYDROCHLOROTHIAZIDE [Concomitant]
  12. SINGULAIR [Concomitant]
  13. M.V.I. [Concomitant]
  14. WELLBUTRIN XL [Concomitant]
  15. CITALOPRAM HYDROBROMIDE [Concomitant]

REACTIONS (3)
  - ACUTE RESPIRATORY FAILURE [None]
  - RESPIRATORY DEPRESSION [None]
  - HYPERCAPNIA [None]
